FAERS Safety Report 9166986 (Version 1)
Quarter: 2013Q1

REPORT INFORMATION
  Report Type: Spontaneous
  Country: IT (occurrence: IT)
  Receive Date: 20130317
  Receipt Date: 20130317
  Transmission Date: 20140127
  Serious: Yes (Other)
  Sender: FDA-Public Use
  Company Number: IT-TEVA-391391ISR

PATIENT
  Age: 35 Year
  Sex: Female

DRUGS (1)
  1. AMOXICILLIN [Suspect]
     Indication: DENTAL OPERATION
     Dosage: 1 GRAM DAILY;
     Route: 048
     Dates: start: 20130227, end: 20130227

REACTIONS (2)
  - Urticaria [Recovered/Resolved]
  - Hyperaemia [Recovered/Resolved]
